FAERS Safety Report 8620749-4 (Version None)
Quarter: 2012Q3

REPORT INFORMATION
  Report Type: 
  Country: None (occurrence: None)
  Receive Date: 20120824
  Receipt Date: 20120817
  Transmission Date: 20120928
  Serious: Yes (Hospitalization, Other)
  Sender: FDA-Public Use
  Company Number: US-US-EMD SERONO, INC.-7029194

PATIENT
  Sex: Female

DRUGS (2)
  1. REBIF [Suspect]
     Indication: MULTIPLE SCLEROSIS
     Route: 058
     Dates: start: 20070427
  2. ALBUTEROL [Concomitant]
     Indication: ASTHMA

REACTIONS (3)
  - PULMONARY MASS [None]
  - PNEUMONIA [None]
  - MULTIPLE SCLEROSIS RELAPSE [None]
